FAERS Safety Report 5134084-2 (Version None)
Quarter: 2006Q4

REPORT INFORMATION
  Report Type: 
  Country: None (occurrence: None)
  Receive Date: 20061024
  Receipt Date: 20061017
  Transmission Date: 20070319
  Serious: Yes (Other)
  Sender: FDA-Public Use
  Company Number: AU-BAYER-200614662GDS

PATIENT
  Sex: Female

DRUGS (2)
  1. ADALAT [Suspect]
     Indication: DRUG USE FOR UNKNOWN INDICATION
     Dosage: UNIT DOSE: 10 MG
     Route: 065
  2. NORVASC [Suspect]
     Indication: DRUG USE FOR UNKNOWN INDICATION
     Dosage: UNIT DOSE: 5 MG
     Route: 065

REACTIONS (3)
  - AORTIC VALVE INCOMPETENCE [None]
  - FLUID RETENTION [None]
  - GENERALISED OEDEMA [None]
